FAERS Safety Report 15259453 (Version 2)
Quarter: 2018Q3

REPORT INFORMATION
  Report Type: Spontaneous
  Country: US (occurrence: US)
  Receive Date: 20180809
  Receipt Date: 20180828
  Transmission Date: 20181010
  Serious: No
  Sender: FDA-Public Use
  Company Number: US-PFIZER INC-2018319641

PATIENT
  Age: 61 Year
  Sex: Female

DRUGS (6)
  1. CELLCEPT [Concomitant]
     Active Substance: MYCOPHENOLATE MOFETIL\MYCOPHENOLATE MOFETIL HYDROCHLORIDE
     Indication: ECZEMA
     Dosage: 500 MG, 3X/DAY
     Route: 048
     Dates: start: 20180629
  2. EUCRISA [Suspect]
     Active Substance: CRISABOROLE
     Indication: NEURODERMATITIS
  3. EUCRISA [Suspect]
     Active Substance: CRISABOROLE
     Indication: PARAESTHESIA
  4. EUCRISA [Suspect]
     Active Substance: CRISABOROLE
     Indication: ECZEMA
  5. EUCRISA [Suspect]
     Active Substance: CRISABOROLE
     Indication: DERMATITIS
     Dosage: UNK UNK, 1X/DAY HS
     Route: 061
     Dates: start: 20180629
  6. FUROSEMIDE. [Concomitant]
     Active Substance: FUROSEMIDE
     Indication: ECZEMA
     Dosage: UNK (MOST RECENT DOSE: 9 AM)
     Dates: start: 20180601

REACTIONS (2)
  - Drug ineffective [Unknown]
  - Burning sensation [Unknown]

NARRATIVE: CASE EVENT DATE: 20180719
